FAERS Safety Report 4695914-1 (Version None)
Quarter: 2005Q2

REPORT INFORMATION
  Report Type: 
  Country: None (occurrence: None)
  Receive Date: 20050608
  Receipt Date: 20040520
  Transmission Date: 20051028
  Serious: Yes (Other)
  Sender: FDA-Public Use
  Company Number: 368247

PATIENT

DRUGS (1)
  1. ISOTRETINOIN [Suspect]
     Indication: ACNE
     Dosage: 20 MG 2 PER DAY ORAL
     Route: 048
     Dates: start: 20040301, end: 20040518

REACTIONS (1)
  - ABORTION INDUCED [None]
